FAERS Safety Report 7033928-7 (Version None)
Quarter: 2010Q4

REPORT INFORMATION
  Report Type: 
  Country: None (occurrence: None)
  Receive Date: 20101005
  Receipt Date: 20100920
  Transmission Date: 20110411
  Serious: Yes (Hospitalization)
  Sender: FDA-Public Use
  Company Number: 2010AT000032

PATIENT
  Age: 68 Year
  Sex: Male

DRUGS (9)
  1. ALPROSTADIL [Suspect]
     Indication: PERIPHERAL ARTERIAL OCCLUSIVE DISEASE
     Dosage: 40 UG
     Dates: start: 20060626, end: 20060713
  2. ASPIRIN [Concomitant]
  3. UNSPECIFIIED CSE INHIBITOR [Concomitant]
  4. ACE INHIBITOR NOS [Concomitant]
  5. BETA BLOCKING AGENTS [Concomitant]
  6. DIURETICS [Concomitant]
  7. INSULIN [Concomitant]
  8. OXYCODONE HCL [Concomitant]
  9. PREGABALIN [Concomitant]

REACTIONS (10)
  - ARTERIAL THERAPEUTIC PROCEDURE [None]
  - CONDITION AGGRAVATED [None]
  - EPILEPSY [None]
  - HYPOGLYCAEMIC UNCONSCIOUSNESS [None]
  - NAUSEA [None]
  - NEUROSURGERY [None]
  - OVERDOSE [None]
  - POOR PERIPHERAL CIRCULATION [None]
  - SYNCOPE [None]
  - VOMITING [None]
